FAERS Safety Report 25538934 (Version 1)
Quarter: 2025Q3

REPORT INFORMATION
  Report Type: Spontaneous
  Country: EU (occurrence: EU)
  Receive Date: 20250710
  Receipt Date: 20250710
  Transmission Date: 20251021
  Serious: Yes (Other)
  Sender: HETERO
  Company Number: EU-STADA-01370965

PATIENT
  Age: 37 Year
  Sex: Female

DRUGS (5)
  1. PREGABALIN [Suspect]
     Active Substance: PREGABALIN
     Indication: Bipolar II disorder
     Route: 065
  2. PREGABALIN [Suspect]
     Active Substance: PREGABALIN
     Route: 065
  3. QUETIAPINE [Concomitant]
     Active Substance: QUETIAPINE
     Indication: Bipolar II disorder
     Route: 065
  4. LAMOTRIGINE [Concomitant]
     Active Substance: LAMOTRIGINE
     Indication: Bipolar II disorder
     Route: 065
  5. LITHIUM [Concomitant]
     Active Substance: LITHIUM
     Indication: Bipolar II disorder
     Route: 065

REACTIONS (4)
  - Self-destructive behaviour [Not Recovered/Not Resolved]
  - Suicidal ideation [Recovered/Resolved]
  - Off label use [Unknown]
  - Drug ineffective [Unknown]
